FAERS Safety Report 4360037-8 (Version None)
Quarter: 2004Q2

REPORT INFORMATION
  Report Type: 
  Country: None (occurrence: None)
  Receive Date: 20040513
  Receipt Date: 20040503
  Transmission Date: 20050107
  Serious: Yes (Other)
  Sender: FDA-Public Use
  Company Number: 2004029813

PATIENT
  Sex: Male
  Weight: 145.151 kg

DRUGS (8)
  1. NEURONTIN [Suspect]
     Indication: NEUROPATHY
     Dosage: 4500 MG (300 MG, TID), ORAL
     Route: 048
  2. TORSEMIDE [Concomitant]
  3. CLONIDINE [Concomitant]
  4. LANSOPRAZOLE [Concomitant]
  5. PAROXETINE HCL [Concomitant]
  6. ALLOPURINOL [Concomitant]
  7. EZETIMIBE (EZETIMIBE) [Concomitant]
  8. CANDESARTAN CILEXETIL (CANDESARTAN CILEXETIL) [Concomitant]

REACTIONS (7)
  - DIZZINESS [None]
  - DRUG EFFECT DECREASED [None]
  - FALL [None]
  - GAIT DISTURBANCE [None]
  - GOUT [None]
  - INSOMNIA [None]
  - NEUROPATHIC PAIN [None]
